FAERS Safety Report 5122564-5 (Version None)
Quarter: 2006Q4

REPORT INFORMATION
  Report Type: 
  Country: None (occurrence: None)
  Receive Date: 20061004
  Receipt Date: 20060922
  Transmission Date: 20070319
  Serious: Yes (Hospitalization, Other)
  Sender: FDA-Public Use
  Company Number: HQWYE532924MAY06

PATIENT
  Age: 59 Year
  Sex: Male

DRUGS (7)
  1. RAPAMUNE [Suspect]
     Indication: PROPHYLAXIS AGAINST TRANSPLANT REJECTION
     Dosage: 2 MG 1X PER 1 DAY ORAL
     Route: 048
     Dates: start: 20060413
  2. RANITIDINE [Concomitant]
  3. ATENOLOL [Concomitant]
  4. SULFAMETHOXAZOLE + TRIMETHOPRIM [Concomitant]
  5. ALPRAZOLAM [Concomitant]
  6. MEPREDNISONE (MEPREDNISONE) [Concomitant]
  7. MYCOPHENOLATE MOFETIL [Concomitant]

REACTIONS (12)
  - BACTERIAL INFECTION [None]
  - BLOOD CREATININE INCREASED [None]
  - BLOOD SODIUM DECREASED [None]
  - BLOOD UREA INCREASED [None]
  - CANDIDIASIS [None]
  - COMPLICATIONS OF TRANSPLANTED KIDNEY [None]
  - CULTURE WOUND POSITIVE [None]
  - HAEMATOCRIT DECREASED [None]
  - PAIN [None]
  - POSTOPERATIVE WOUND INFECTION [None]
  - SCAR [None]
  - URINARY FISTULA [None]
